FAERS Safety Report 5435992-5 (Version None)
Quarter: 2007Q3

REPORT INFORMATION
  Report Type: 
  Country: None (occurrence: None)
  Receive Date: 20070831
  Receipt Date: 20070827
  Transmission Date: 20080115
  Serious: Yes (Hospitalization)
  Sender: FDA-Public Use
  Company Number: A0676662A

PATIENT
  Age: 63 Year
  Sex: Female

DRUGS (5)
  1. LAMICTAL [Suspect]
     Indication: BIPOLAR DISORDER
     Dosage: 75MG TWICE PER DAY
     Route: 048
  2. RIBAVIRIN [Suspect]
     Route: 065
  3. COUMADIN [Concomitant]
  4. ZYPREXA [Concomitant]
  5. PEGASYS [Concomitant]

REACTIONS (6)
  - BALANCE DISORDER [None]
  - FULL BLOOD COUNT DECREASED [None]
  - LIP SWELLING [None]
  - OEDEMA MOUTH [None]
  - RASH ERYTHEMATOUS [None]
  - SKIN EXFOLIATION [None]
